FAERS Safety Report 15385377 (Version 2)
Quarter: 2018Q4

REPORT INFORMATION
  Report Type: Spontaneous
  Country: DE (occurrence: DE)
  Receive Date: 20180914
  Receipt Date: 20181219
  Transmission Date: 20190204
  Serious: Yes (Hospitalization, Other)
  Sender: FDA-Public Use
  Company Number: PHHY2018DE096753

PATIENT
  Age: 75 Year
  Sex: Female
  Weight: 50 kg

DRUGS (21)
  1. AVASTIN [Suspect]
     Active Substance: BEVACIZUMAB
     Dosage: 780 MG, Q3W
     Route: 042
     Dates: start: 20160704
  2. RANITIDINE. [Concomitant]
     Active Substance: RANITIDINE
     Indication: PRODUCT USED FOR UNKNOWN INDICATION
     Dosage: 50 MG, UNK
     Route: 042
  3. CARBOPLATIN. [Suspect]
     Active Substance: CARBOPLATIN
     Dosage: 325 MG, Q3W
     Route: 042
     Dates: start: 20160104
  4. CARBOPLATIN. [Suspect]
     Active Substance: CARBOPLATIN
     Dosage: 374 MG, Q3W
     Route: 042
     Dates: start: 20160125
  5. PACLITAXEL. [Suspect]
     Active Substance: PACLITAXEL
     Dosage: 280 MG, Q3W
     Route: 042
     Dates: start: 20151211
  6. PACLITAXEL. [Suspect]
     Active Substance: PACLITAXEL
     Dosage: 280 MG, UNK
     Route: 042
     Dates: start: 20151120, end: 20160317
  7. CARBOPLATIN. [Suspect]
     Active Substance: CARBOPLATIN
     Indication: OVARIAN CANCER
     Dosage: 374 MG, Q3W
     Route: 042
     Dates: start: 20151120
  8. CARBOPLATIN. [Suspect]
     Active Substance: CARBOPLATIN
     Dosage: 374 MG, UNK
     Route: 042
     Dates: start: 20151120, end: 20151211
  9. AVASTIN [Suspect]
     Active Substance: BEVACIZUMAB
     Indication: OVARIAN CANCER
     Dosage: 780 MG, Q3W
     Route: 042
     Dates: start: 20151211
  10. AVASTIN [Suspect]
     Active Substance: BEVACIZUMAB
     Dosage: 280 MG, Q3W
     Route: 042
     Dates: start: 20160216
  11. FENISTIL [Concomitant]
     Active Substance: DIMETHINDENE
     Indication: HYPERTENSION
     Route: 042
  12. CARBOPLATIN. [Suspect]
     Active Substance: CARBOPLATIN
     Dosage: 374 MG, Q3W
     Route: 042
     Dates: start: 20151211
  13. CARBOPLATIN. [Suspect]
     Active Substance: CARBOPLATIN
     Dosage: 374 MG, Q3W
     Route: 042
     Dates: start: 20160216
  14. PACLITAXEL. [Suspect]
     Active Substance: PACLITAXEL
     Dosage: 280 MG, Q3W
     Route: 042
     Dates: start: 20160104
  15. CARBOPLATIN. [Suspect]
     Active Substance: CARBOPLATIN
     Dosage: 374 MG, UNK
     Route: 042
     Dates: start: 20160125, end: 20160317
  16. BELOC ZOK [Concomitant]
     Active Substance: METOPROLOL SUCCINATE
     Indication: HYPERTENSION
     Dosage: 47.5 MG, UNK
     Route: 048
  17. BAYOTENSIN [Concomitant]
     Active Substance: NITRENDIPINE
     Indication: HYPERTENSION
     Dosage: 5 MG, UNK
     Route: 048
     Dates: start: 20160725, end: 20160725
  18. PACLITAXEL. [Suspect]
     Active Substance: PACLITAXEL
     Indication: OVARIAN CANCER
     Dosage: 280 MG, Q3W
     Route: 042
     Dates: start: 20151120
  19. PACLITAXEL. [Suspect]
     Active Substance: PACLITAXEL
     Dosage: 280 MG, Q3W
     Route: 042
     Dates: start: 20160125
  20. PACLITAXEL. [Suspect]
     Active Substance: PACLITAXEL
     Dosage: 280 MG, Q3W
     Route: 042
     Dates: start: 20160216
  21. FORTECORTIN [Concomitant]
     Active Substance: DEXAMETHASONE
     Indication: PRODUCT USED FOR UNKNOWN INDICATION
     Dosage: 20 MG, UNK
     Route: 042

REACTIONS (6)
  - Hypertension [Recovered/Resolved]
  - Hypertensive crisis [Recovered/Resolved]
  - General physical health deterioration [Recovered/Resolved]
  - Sleep disorder [Unknown]
  - Hypertension [Recovered/Resolved]
  - Asthenia [Recovered/Resolved]

NARRATIVE: CASE EVENT DATE: 20151120
